FAERS Safety Report 9529920 (Version 1)
Quarter: 2013Q3

REPORT INFORMATION
  Report Type: Spontaneous
  Country: GB (occurrence: GB)
  Receive Date: 20130917
  Receipt Date: 20130917
  Transmission Date: 20140515
  Serious: Yes (Life-Threatening, Hospitalization, Other)
  Sender: FDA-Public Use
  Company Number: GB-TEVA-431162ISR

PATIENT
  Sex: Female

DRUGS (12)
  1. METRONIDAZOLE [Suspect]
     Indication: CLOSTRIDIUM DIFFICILE INFECTION
     Dosage: 1200 MILLIGRAM DAILY;
     Route: 048
     Dates: start: 20120415, end: 20120425
  2. TRIMETHOPRIM [Suspect]
     Dosage: 400 MILLIGRAM DAILY; THE LAST DOSE WAS HAD PRIOR TO HOSPITAL ADMISSION
     Route: 048
     Dates: start: 20120515, end: 20120517
  3. CO-AMOXICLAV [Suspect]
     Route: 048
     Dates: start: 20120320, end: 20120327
  4. FOSFOMYCIN [Suspect]
     Indication: URINARY TRACT INFECTION
     Dosage: 3 GRAM DAILY;
     Route: 048
     Dates: start: 20120419
  5. WARFARIN [Concomitant]
     Dosage: 1MG AND 5MG STRENGTHS
  6. CALCICHEW D3 [Concomitant]
  7. DULOXETINE [Concomitant]
  8. ZOPICLONE [Concomitant]
  9. BETAHISTINE [Concomitant]
  10. SERETIDE [Concomitant]
     Route: 055
  11. SIMVASTATIN [Concomitant]
     Dosage: 40 MILLIGRAM DAILY; TAKEN AT NIGHT
  12. HYDROXOCOBALAMIN [Concomitant]

REACTIONS (1)
  - International normalised ratio increased [Recovered/Resolved]
